FAERS Safety Report 16413478 (Version 2)
Quarter: 2019Q3

REPORT INFORMATION
  Report Type: Report from Study
  Country: US (occurrence: US)
  Receive Date: 20190611
  Receipt Date: 20190717
  Transmission Date: 20191004
  Serious: Yes (Hospitalization, Other)
  Sender: FDA-Public Use
  Company Number: PHEH2019US024381

PATIENT
  Sex: Female
  Weight: 51.25 kg

DRUGS (3)
  1. COSENTYX [Suspect]
     Active Substance: SECUKINUMAB
     Indication: PSORIASIS
     Dosage: 300 MG, QMO (Q4W)
     Route: 065
     Dates: start: 20161121, end: 20170630
  2. COSENTYX [Suspect]
     Active Substance: SECUKINUMAB
     Indication: PSORIATIC ARTHROPATHY
     Dosage: 300 MG, QMO (Q4W)
     Route: 065
     Dates: start: 20180709, end: 20181215
  3. COSENTYX [Suspect]
     Active Substance: SECUKINUMAB
     Dosage: 300 MG, QMO
     Route: 058
     Dates: start: 20190422

REACTIONS (8)
  - Hypercapnia [Recovered/Resolved]
  - Seizure [Unknown]
  - Myocardial infarction [Unknown]
  - Ventricular arrhythmia [Unknown]
  - Pneumonia [Recovered/Resolved]
  - Acute respiratory failure [Recovered/Resolved]
  - Embolic stroke [Unknown]
  - Hypotension [Unknown]

NARRATIVE: CASE EVENT DATE: 2018
